FAERS Safety Report 4591547-6 (Version None)
Quarter: 2005Q1

REPORT INFORMATION
  Report Type: 
  Country: None (occurrence: None)
  Receive Date: 20050222
  Receipt Date: 20050208
  Transmission Date: 20050727
  Serious: Yes (Death)
  Sender: FDA-Public Use
  Company Number: GXKR2005CH00570

PATIENT
  Age: 45 Year
  Sex: Male

DRUGS (4)
  1. FLUOXETINE [Suspect]
  2. BUPRENORPHINE HCL [Suspect]
  3. COCAINE (COCAINE) [Suspect]
     Dosage: OVERDOSE
  4. CANNABIS(CANNABIS, CANNABIS SATIVA) [Suspect]

REACTIONS (8)
  - CARDIAC DISORDER [None]
  - CORONARY ARTERY ATHEROSCLEROSIS [None]
  - DRUG DEPENDENCE [None]
  - DRUG INTERACTION [None]
  - FIBROSIS [None]
  - INFLAMMATION [None]
  - OVERDOSE [None]
  - RENAL VESSEL DISORDER [None]
